FAERS Safety Report 9530640 (Version 1)
Quarter: 2013Q3

REPORT INFORMATION
  Report Type: Spontaneous
  Country: FR (occurrence: FR)
  Receive Date: 20130918
  Receipt Date: 20130918
  Transmission Date: 20140515
  Serious: Yes (Hospitalization)
  Sender: FDA-Public Use
  Company Number: FR-JNJFOC-20130907274

PATIENT
  Sex: Male

DRUGS (11)
  1. OFLOCET [Suspect]
     Indication: PRODUCT USED FOR UNKNOWN INDICATION
     Route: 048
     Dates: start: 20130621, end: 20130702
  2. CETIRIZINE HYDROCHLORIDE [Suspect]
     Route: 048
  3. CETIRIZINE HYDROCHLORIDE [Suspect]
     Indication: PRODUCT USED FOR UNKNOWN INDICATION
     Route: 048
     Dates: start: 20130622, end: 20130705
  4. DIFFU K [Suspect]
     Indication: PRODUCT USED FOR UNKNOWN INDICATION
     Route: 048
     Dates: start: 20130613, end: 20130620
  5. LOVENOX [Suspect]
     Indication: PRODUCT USED FOR UNKNOWN INDICATION
     Route: 058
     Dates: start: 20130612, end: 20130708
  6. ACUPAN [Suspect]
     Indication: PRODUCT USED FOR UNKNOWN INDICATION
     Route: 040
     Dates: start: 20130612, end: 20130620
  7. GENTAMICIN [Suspect]
     Indication: STAPHYLOCOCCAL SEPSIS
     Route: 042
     Dates: start: 20130616, end: 20130619
  8. TERCIAN [Suspect]
     Indication: PRODUCT USED FOR UNKNOWN INDICATION
     Dosage: 40MG/ML
     Route: 048
     Dates: start: 20130615, end: 20130629
  9. OXYNORM [Suspect]
     Indication: PRODUCT USED FOR UNKNOWN INDICATION
     Route: 048
     Dates: start: 20130617, end: 20130622
  10. MOVICOL [Suspect]
     Indication: PRODUCT USED FOR UNKNOWN INDICATION
     Route: 048
     Dates: start: 20130617, end: 20130622
  11. ORBENINE [Suspect]
     Indication: PRODUCT USED FOR UNKNOWN INDICATION
     Dosage: 1GM/5ML
     Route: 042
     Dates: start: 20130616, end: 20130626

REACTIONS (3)
  - Tendonitis [Recovering/Resolving]
  - Purpura [Recovered/Resolved]
  - Oedema peripheral [Recovered/Resolved]
